FAERS Safety Report 8179929-7 (Version None)
Quarter: 2012Q1

REPORT INFORMATION
  Report Type: 
  Country: None (occurrence: None)
  Receive Date: 20120302
  Receipt Date: 20120222
  Transmission Date: 20120608
  Serious: Yes (Other)
  Sender: FDA-Public Use
  Company Number: IT-SANOFI-AVENTIS-2012SA007537

PATIENT
  Age: 80 Year
  Sex: Male

DRUGS (8)
  1. PLAVIX [Suspect]
     Dosage: DOSE: 75 MG
     Route: 048
  2. LOSARTAN POTASSIUM [Suspect]
     Route: 065
     Dates: start: 20111106, end: 20111106
  3. ATENOLOL [Suspect]
     Route: 048
     Dates: start: 20111106, end: 20111106
  4. PLAVIX [Suspect]
     Dosage: DOSE: 75 X 2
     Route: 048
     Dates: start: 20111106, end: 20111106
  5. ATENOLOL AND CHLORTHALIDONE [Suspect]
     Route: 048
  6. LOSARTAN POTASSIUM [Suspect]
     Route: 065
  7. ATENOLOL AND CHLORTHALIDONE [Suspect]
     Route: 048
     Dates: start: 20111106, end: 20111106
  8. ATENOLOL [Suspect]
     Route: 048

REACTIONS (2)
  - ACCIDENTAL OVERDOSE [None]
  - HYPERTENSION [None]
